FAERS Safety Report 8365407-9 (Version None)
Quarter: 2012Q2

REPORT INFORMATION
  Report Type: 
  Country: None (occurrence: None)
  Receive Date: 20120516
  Receipt Date: 20120423
  Transmission Date: 20120825
  Serious: Yes (Other)
  Sender: FDA-Public Use
  Company Number: US-ELI_LILLY_AND_COMPANY-US201205004709

PATIENT
  Sex: Female

DRUGS (5)
  1. SIMVASTATIN [Concomitant]
  2. ISOSORBIDE DINITRATE [Concomitant]
  3. LINAGLIPTIN [Concomitant]
  4. METOPROLOL TARTRATE [Concomitant]
  5. CYMBALTA [Suspect]
     Dosage: UNK, UNKNOWN

REACTIONS (8)
  - RENAL FAILURE [None]
  - WEIGHT DECREASED [None]
  - LOSS OF CONSCIOUSNESS [None]
  - PSYCHOMOTOR HYPERACTIVITY [None]
  - CRYING [None]
  - TYPE 2 DIABETES MELLITUS [None]
  - BLOOD GLUCOSE DECREASED [None]
  - BLOOD GLUCOSE INCREASED [None]
